FAERS Safety Report 4540997-2 (Version None)
Quarter: 2004Q4

REPORT INFORMATION
  Report Type: 
  Country: None (occurrence: None)
  Receive Date: 20041228
  Receipt Date: 20421216
  Transmission Date: 20050328
  Serious: Yes (Other)
  Sender: FDA-Public Use
  Company Number: 200410635BFR

PATIENT
  Age: 60 Year
  Sex: Male

DRUGS (6)
  1. GLUCOR (ACARBOSE) [Suspect]
     Indication: HYPERGLYCAEMIA
     Dosage: 150 MG, TOTAL DAILY, ORAL
     Route: 048
     Dates: start: 20041104, end: 20040101
  2. CIPROFLOXACIN HCL [Suspect]
     Indication: INFLUENZA
     Dates: start: 20041004
  3. AMLODIPINE [Concomitant]
  4. TRIVASTAL [Concomitant]
  5. NISIS [Concomitant]
  6. ASPEGIC/FRA [Concomitant]

REACTIONS (8)
  - ANGINA PECTORIS [None]
  - GAMMA-GLUTAMYLTRANSFERASE INCREASED [None]
  - HYPERGLYCAEMIA [None]
  - MEDICATION ERROR [None]
  - NAUSEA [None]
  - TRANSAMINASES INCREASED [None]
  - VOMITING [None]
  - WEIGHT DECREASED [None]
